FAERS Safety Report 6280368-4 (Version None)
Quarter: 2009Q3

REPORT INFORMATION
  Report Type: 
  Country: None (occurrence: None)
  Receive Date: 20090724
  Receipt Date: 20090713
  Transmission Date: 20100115
  Serious: Yes (Hospitalization)
  Sender: FDA-Public Use
  Company Number: CA-JNJFOC-20090704224

PATIENT
  Age: 32 Year
  Sex: Male
  Weight: 85.8 kg

DRUGS (4)
  1. REMICADE [Suspect]
     Indication: ANKYLOSING SPONDYLITIS
     Route: 042
  2. METHOTREXATE [Concomitant]
     Indication: ANKYLOSING SPONDYLITIS
     Route: 048
  3. FOLIC ACID [Concomitant]
     Route: 048
  4. TYLENOL [Concomitant]
     Indication: ANKYLOSING SPONDYLITIS

REACTIONS (2)
  - ABDOMINAL PAIN UPPER [None]
  - PULMONARY MASS [None]
